FAERS Safety Report 24041176 (Version 1)
Quarter: 2024Q3

REPORT INFORMATION
  Report Type: Report from Study
  Country: CA (occurrence: CA)
  Receive Date: 20240702
  Receipt Date: 20240702
  Transmission Date: 20241016
  Serious: Yes (Other)
  Sender: ROCHE
  Company Number: CA-002147023-NVSC2024CA130957

PATIENT
  Age: 27 Year
  Sex: Female

DRUGS (1)
  1. XOLAIR [Suspect]
     Active Substance: OMALIZUMAB
     Indication: Chronic spontaneous urticaria
     Dosage: 300 MG, 4 WEEKS
     Route: 050
     Dates: start: 20240426

REACTIONS (8)
  - Anaphylactic reaction [Unknown]
  - Lip swelling [Unknown]
  - Heart rate increased [Unknown]
  - Throat irritation [Unknown]
  - Eye swelling [Unknown]
  - Nausea [Unknown]
  - Diarrhoea [Unknown]
  - Food allergy [Unknown]

NARRATIVE: CASE EVENT DATE: 20240620
